FAERS Safety Report 4338443-7 (Version None)
Quarter: 2004Q2

REPORT INFORMATION
  Report Type: 
  Country: None (occurrence: None)
  Receive Date: 20040407
  Receipt Date: 20040325
  Transmission Date: 20050107
  Serious: Yes (Hospitalization)
  Sender: FDA-Public Use
  Company Number: 2004020500

PATIENT
  Age: 61 Year
  Sex: Female

DRUGS (2)
  1. AMLODIPINE [Suspect]
     Indication: HYPERTENSION
     Dosage: 5 MG (DAILY), ORAL
     Route: 048
     Dates: start: 20010615, end: 20031015
  2. BISELECT (BISOPROLOL FUMARATE, HYDROCHLOROTHIAZIDE) [Suspect]
     Indication: HYPERTENSION
     Dosage: 2.5 MG (DAILY),ORAL
     Route: 048
     Dates: start: 20010715, end: 20030415

REACTIONS (2)
  - MYELOPROLIFERATIVE DISORDER [None]
  - POLYCYTHAEMIA VERA [None]
